FAERS Safety Report 18771635 (Version 1)
Quarter: 2021Q1

REPORT INFORMATION
  Report Type: Spontaneous
  Country: US (occurrence: US)
  Receive Date: 20210122
  Receipt Date: 20210122
  Transmission Date: 20210419
  Serious: No
  Sender: FDA-Public Use
  Company Number: US-PCCINC-2020-PEL-000115

PATIENT

DRUGS (3)
  1. GABLOFEN [Suspect]
     Active Substance: BACLOFEN
     Dosage: 479.6 MICROGRAM, PER DAY
     Route: 037
  2. GABLOFEN [Suspect]
     Active Substance: BACLOFEN
     Dosage: 500 MICROGRAM, PER DAY
     Route: 037
  3. GABLOFEN [Suspect]
     Active Substance: BACLOFEN
     Indication: MUSCLE SPASTICITY
     Dosage: 452.7 MICROGRAM, PER DAY
     Route: 037

REACTIONS (1)
  - Muscle spasticity [Unknown]

NARRATIVE: CASE EVENT DATE: 20200302
